FAERS Safety Report 6018811-8 (Version None)
Quarter: 2008Q4

REPORT INFORMATION
  Report Type: 
  Country: None (occurrence: None)
  Receive Date: 20081222
  Receipt Date: 20081208
  Transmission Date: 20090506
  Serious: Yes (Hospitalization, Other)
  Sender: FDA-Public Use
  Company Number: 232747K08USA

PATIENT
  Age: 45 Year
  Sex: Male

DRUGS (5)
  1. REBIF [Suspect]
     Indication: MULTIPLE SCLEROSIS
     Dosage: 44 MCG, 3 IN 1 WEEKS, SUBCUTANEOUS
     Route: 058
     Dates: start: 20080509
  2. FLOMAX (MORNIFLUMATE) [Concomitant]
  3. PROTONIX [Concomitant]
  4. PROVIGIL [Concomitant]
  5. TYLENOL (COTYLENOL) [Concomitant]

REACTIONS (2)
  - PROSTATE INFECTION [None]
  - PROSTATIC MASS [None]
